FAERS Safety Report 25892712 (Version 1)
Quarter: 2025Q4

REPORT INFORMATION
  Report Type: Spontaneous
  Country: GB (occurrence: GB)
  Receive Date: 20251007
  Receipt Date: 20251007
  Transmission Date: 20260117
  Serious: Yes (Other)
  Sender: PURDUE
  Company Number: GB-MHRA-TPP7401000C10131145YC1759237133074

PATIENT
  Age: 80 Year
  Sex: Female
  Weight: 75 kg

DRUGS (15)
  1. BUPRENORPHINE [Suspect]
     Active Substance: BUPRENORPHINE
     Indication: Ill-defined disorder
     Dosage: APPLY ONE PATCH TO CLEAN DRY, NON-HAIRY SKIN (UPPER BACKOR UPPER CHEST) EVERY SEVEN DAYS (CONTAINSBU
     Route: 065
     Dates: start: 20250923
  2. POLYETHYLENE GLYCOLS [Concomitant]
     Active Substance: POLYETHYLENE GLYCOLS
     Indication: Ill-defined disorder
     Dosage: DISSOLVE THE CONTENTS OF ONE SACHET IN HALF A G...
     Route: 065
     Dates: start: 20250808, end: 20250907
  3. NEFOPAM [Concomitant]
     Active Substance: NEFOPAM
     Indication: Ill-defined disorder
     Dosage: TAKE TWO 3 TIMES/DAY WHEN REQUIRED
     Route: 065
     Dates: start: 20250808, end: 20250823
  4. CODEINE PHOSPHATE [Concomitant]
     Active Substance: CODEINE PHOSPHATE
     Indication: Ill-defined disorder
     Dosage: TAKE ONE OR TWO TABLETS EVERY FOUR TO SIX HOURS...
     Route: 065
     Dates: start: 20250813, end: 20250820
  5. BISOPROLOL [Concomitant]
     Active Substance: BISOPROLOL
     Indication: Ill-defined disorder
     Dosage: TAKE ONE DAILY
     Route: 065
     Dates: start: 20250625
  6. CALCI D [Concomitant]
     Indication: Ill-defined disorder
     Dosage: SUCK OR CHEW ONE TABLET ONCE A DAY PREFERABLY W...
     Route: 065
     Dates: start: 20250625
  7. OMEPRAZOLE [Concomitant]
     Active Substance: OMEPRAZOLE
     Indication: Ill-defined disorder
     Dosage: TAKE ONE DAILY TO REDUCE STOMACH ACID / PROTECT...
     Route: 065
     Dates: start: 20250625
  8. ACETAMINOPHEN [Concomitant]
     Active Substance: ACETAMINOPHEN
     Indication: Ill-defined disorder
     Dosage: TAKE 1 OR 2 4 TIMES/DAY WHEN REQUIRED FOR PAIN
     Route: 065
     Dates: start: 20250625
  9. RIVAROXABAN [Concomitant]
     Active Substance: RIVAROXABAN
     Indication: Ill-defined disorder
     Dosage: TAKE ONE TABLET DAILY WITH FOOD. PLEASE CARRY Y...
     Route: 065
     Dates: start: 20250625
  10. BECLOMETHASONE DIPROPIONATE\FORMOTEROL FUMARATE\GLYCOPYRROLATE [Concomitant]
     Active Substance: BECLOMETHASONE DIPROPIONATE\FORMOTEROL FUMARATE\GLYCOPYRROLATE
     Indication: Ill-defined disorder
     Dosage: TWO PUFFS TWICE DAILY
     Route: 065
     Dates: start: 20250625
  11. BENDROFLUMETHIAZIDE [Concomitant]
     Active Substance: BENDROFLUMETHIAZIDE
     Indication: Ill-defined disorder
     Dosage: TAKE ONE TABLET EACH MORNING
     Route: 065
     Dates: start: 20250626, end: 20250805
  12. ALBUTEROL [Concomitant]
     Active Substance: ALBUTEROL
     Indication: Ill-defined disorder
     Dosage: INHALE TWO DOSES WHEN NEEDED FOR WHEEZING (INHA...
     Route: 065
     Dates: start: 20250626
  13. SERTRALINE [Concomitant]
     Active Substance: SERTRALINE HYDROCHLORIDE
     Indication: Ill-defined disorder
     Dosage: TAKE ONE TABLET DAILY
     Route: 065
     Dates: start: 20250626
  14. SOLIFENACIN [Concomitant]
     Active Substance: SOLIFENACIN
     Indication: Ill-defined disorder
     Dosage: TAKE ONE TABLET DAILY
     Route: 065
     Dates: start: 20250626
  15. FUROSEMIDE [Concomitant]
     Active Substance: FUROSEMIDE
     Indication: Ill-defined disorder
     Dosage: TAKE TWO TABLETS EACH MORNING AND ONE TABLET AT...
     Route: 065
     Dates: start: 20250805, end: 20250916

REACTIONS (1)
  - Hallucinations, mixed [Unknown]
